FAERS Safety Report 15057979 (Version 2)
Quarter: 2022Q3

REPORT INFORMATION
  Report Type: Spontaneous
  Country: US (occurrence: US)
  Receive Date: 20180625
  Receipt Date: 20220728
  Transmission Date: 20221027
  Serious: No
  Sender: FDA-Public Use
  Company Number: US-GLENMARK PHARMACEUTICALS-2018GMK033811

PATIENT

DRUGS (2)
  1. MUPIROCIN [Suspect]
     Active Substance: MUPIROCIN
     Indication: Nasal septum disorder
     Dosage: 1 DF, TID
     Route: 045
     Dates: start: 20180305, end: 20180315
  2. MUPIROCIN [Suspect]
     Active Substance: MUPIROCIN
     Indication: Sinusitis

REACTIONS (11)
  - Rhinorrhoea [Unknown]
  - Epistaxis [Unknown]
  - Product dispensing error [Unknown]
  - Impaired healing [Not Recovered/Not Resolved]
  - Incorrect route of product administration [Unknown]
  - Application site irritation [Unknown]
  - Application site pain [Unknown]
  - Drug ineffective for unapproved indication [Unknown]
  - Erythema [Not Recovered/Not Resolved]
  - Nasal discomfort [Not Recovered/Not Resolved]
  - Condition aggravated [Not Recovered/Not Resolved]

NARRATIVE: CASE EVENT DATE: 20180305
